FAERS Safety Report 4449850-6 (Version None)
Quarter: 2004Q3

REPORT INFORMATION
  Report Type: 
  Country: None (occurrence: None)
  Receive Date: 20040803
  Receipt Date: 20040402
  Transmission Date: 20050211
  Serious: Yes (Hospitalization)
  Sender: FDA-Public Use
  Company Number: CERZ-10546

PATIENT
  Age: 34 Month
  Sex: Female
  Weight: 9.2 kg

DRUGS (1)
  1. CEREZYME [Suspect]
     Indication: GAUCHER'S DISEASE
     Dosage: 1000 UNITS QWK IV
     Route: 042
     Dates: start: 20011001

REACTIONS (1)
  - PNEUMONIA [None]
